FAERS Safety Report 19595506 (Version 1)
Quarter: 2021Q3

REPORT INFORMATION
  Report Type: Report from Study
  Country: ZA (occurrence: ZA)
  Receive Date: 20210722
  Receipt Date: 20210722
  Transmission Date: 20211014
  Serious: Yes (Other)
  Sender: FDA-Public Use
  Company Number: NVSC2021ZA146091

PATIENT
  Age: 45 Year
  Sex: Female

DRUGS (1)
  1. COSENTYX [Suspect]
     Active Substance: SECUKINUMAB
     Indication: ANKYLOSING SPONDYLITIS
     Dosage: 150 MG, QW
     Route: 058
     Dates: start: 20210524

REACTIONS (13)
  - Lower respiratory tract infection [Unknown]
  - SARS-CoV-2 test positive [Recovering/Resolving]
  - Oropharyngeal pain [Unknown]
  - Productive cough [Unknown]
  - Dysphonia [Unknown]
  - Nasal congestion [Unknown]
  - Pharyngitis [Unknown]
  - Asthenia [Unknown]
  - Arthropathy [Unknown]
  - Musculoskeletal stiffness [Unknown]
  - Fatigue [Unknown]
  - Cough [Unknown]
  - Nasopharyngitis [Unknown]

NARRATIVE: CASE EVENT DATE: 20210524
